FAERS Safety Report 21873663 (Version 1)
Quarter: 2023Q1

REPORT INFORMATION
  Report Type: Spontaneous
  Country: AT (occurrence: AT)
  Receive Date: 20230117
  Receipt Date: 20230117
  Transmission Date: 20230418
  Serious: Yes (Other)
  Sender: FDA-Public Use
  Company Number: None

PATIENT
  Sex: Female

DRUGS (18)
  1. ESCITALOPRAM OXALATE [Suspect]
     Active Substance: ESCITALOPRAM OXALATE
     Indication: Product used for unknown indication
     Dosage: 10 MG
     Dates: start: 20220526, end: 20220528
  2. ESCITALOPRAM OXALATE [Suspect]
     Active Substance: ESCITALOPRAM OXALATE
     Dosage: 20 MG
     Dates: start: 20220516, end: 20220525
  3. AMITRIPTYLINE [Suspect]
     Active Substance: AMITRIPTYLINE
     Indication: Product used for unknown indication
     Dosage: 25 MG
     Dates: start: 20220526, end: 20220528
  4. AMITRIPTYLINE [Suspect]
     Active Substance: AMITRIPTYLINE
     Dosage: 50 MG
     Dates: start: 20220516, end: 20220525
  5. LORAZEPAM [Suspect]
     Active Substance: LORAZEPAM
     Indication: Product used for unknown indication
     Dosage: 0.25 MG
     Dates: start: 20220529, end: 20220601
  6. LORAZEPAM [Suspect]
     Active Substance: LORAZEPAM
     Dosage: 0.5 MG
     Dates: start: 20220525, end: 20220528
  7. LORAZEPAM [Suspect]
     Active Substance: LORAZEPAM
     Dosage: 0.75 MG
     Dates: start: 20220519, end: 20220524
  8. LORAZEPAM [Suspect]
     Active Substance: LORAZEPAM
     Dosage: 1 MG
     Dates: start: 20220516, end: 20220518
  9. ZOLPIDEM [Suspect]
     Active Substance: ZOLPIDEM TARTRATE
     Indication: Product used for unknown indication
     Dosage: 10 MG
     Dates: start: 20220516, end: 20220614
  10. MILNACIPRAN HYDROCHLORIDE [Suspect]
     Active Substance: MILNACIPRAN HYDROCHLORIDE
     Indication: Product used for unknown indication
     Dosage: 50 MG
     Dates: start: 20220527, end: 20220527
  11. MILNACIPRAN HYDROCHLORIDE [Suspect]
     Active Substance: MILNACIPRAN HYDROCHLORIDE
     Dosage: 25 MG
     Dates: start: 20220525, end: 20220526
  12. PREGABALIN [Suspect]
     Active Substance: PREGABALIN
     Indication: Product used for unknown indication
     Dosage: 700 MG
     Dates: start: 20220525, end: 20220610
  13. PREGABALIN [Suspect]
     Active Substance: PREGABALIN
     Dosage: 600 MG
     Dates: start: 20220524, end: 20220524
  14. PREGABALIN [Suspect]
     Active Substance: PREGABALIN
     Dosage: 500 MG
     Dates: start: 20220518, end: 20220523
  15. PREGABALIN [Suspect]
     Active Substance: PREGABALIN
     Dosage: 400 MG
     Dates: start: 20220517, end: 20220517
  16. ASPIRIN [Suspect]
     Active Substance: ASPIRIN
     Indication: Product used for unknown indication
     Dosage: 80 MG
     Dates: start: 20220518, end: 20220614
  17. PANTOPRAZOLE SODIUM [Concomitant]
     Active Substance: PANTOPRAZOLE SODIUM
     Indication: Product used for unknown indication
     Dosage: 40 MG
     Dates: start: 20220516, end: 20220603
  18. ATORVASTATIN [Concomitant]
     Active Substance: ATORVASTATIN
     Indication: Product used for unknown indication
     Dosage: 10 MG
     Dates: start: 20220524, end: 20220614

REACTIONS (1)
  - Urinary hesitation [Recovered/Resolved]

NARRATIVE: CASE EVENT DATE: 20220527
